FAERS Safety Report 7373917-6 (Version None)
Quarter: 2011Q1

REPORT INFORMATION
  Report Type: 
  Country: None (occurrence: None)
  Receive Date: 20110325
  Receipt Date: 20110321
  Transmission Date: 20110831
  Serious: No
  Sender: FDA-Public Use
  Company Number: US-PFIZER INC-2011062600

PATIENT
  Sex: Male
  Weight: 65.306 kg

DRUGS (3)
  1. METHADONE [Concomitant]
     Indication: PAIN
     Dosage: UNK, EVERY 6 HOURS
     Route: 048
  2. SUTENT [Suspect]
     Indication: METASTATIC RENAL CELL CARCINOMA
     Dosage: 50 MG, DAILY
     Route: 048
     Dates: start: 20110101, end: 20110201
  3. ATIVAN [Concomitant]
     Indication: ANXIETY
     Dosage: 1 MG, EVERY EIGHT HOURS
     Route: 048

REACTIONS (2)
  - NAUSEA [None]
  - WRONG TECHNIQUE IN DRUG USAGE PROCESS [None]
